FAERS Safety Report 6594266-X (Version None)
Quarter: 2010Q1

REPORT INFORMATION
  Report Type: 
  Country: None (occurrence: None)
  Receive Date: 20100222
  Receipt Date: 20100218
  Transmission Date: 20100710
  Serious: Yes (Life-Threatening)
  Sender: FDA-Public Use
  Company Number: US-B.I. PHARMACEUTICALS,INC./RIDGEFIELD-2009-BP-06340BP

PATIENT
  Sex: Female

DRUGS (6)
  1. SPIRIVA [Suspect]
     Indication: CHRONIC OBSTRUCTIVE PULMONARY DISEASE
     Dosage: 18 MCG
     Route: 055
     Dates: start: 20090429
  2. SPIRIVA [Suspect]
     Indication: EMPHYSEMA
  3. BIAXIN [Suspect]
     Indication: SINUSITIS
     Dates: start: 20100201
  4. ZOLOFT [Concomitant]
     Indication: ANXIETY
     Dosage: 37.5 MG
     Route: 048
  5. XOPENEX [Concomitant]
     Indication: CHRONIC OBSTRUCTIVE PULMONARY DISEASE
  6. ASPIRIN [Concomitant]
     Indication: PROPHYLAXIS

REACTIONS (5)
  - ANAPHYLACTIC REACTION [None]
  - BRONCHITIS [None]
  - CHEST DISCOMFORT [None]
  - SINUSITIS [None]
  - UPPER RESPIRATORY TRACT INFECTION [None]
